FAERS Safety Report 24728854 (Version 1)
Quarter: 2024Q4

REPORT INFORMATION
  Report Type: Spontaneous
  Country: US (occurrence: US)
  Receive Date: 20241212
  Receipt Date: 20241212
  Transmission Date: 20250115
  Serious: No
  Sender: AUROBINDO
  Company Number: US-AUROBINDO-AUR-APL-2024-009670

PATIENT
  Age: 77 Year
  Sex: Male
  Weight: 83.9 kg

DRUGS (5)
  1. FINASTERIDE [Suspect]
     Active Substance: FINASTERIDE
     Indication: Prostate infection
     Dosage: UNK
     Route: 048
     Dates: start: 20240126
  2. FINASTERIDE [Suspect]
     Active Substance: FINASTERIDE
     Dosage: 1 DOSAGE FORM, ONCE A DAY
     Route: 048
     Dates: start: 20240126
  3. ATORVASTATIN [Concomitant]
     Active Substance: ATORVASTATIN
     Indication: Blood cholesterol
     Dosage: UNK
     Route: 048
  4. LISINOPRIL [Concomitant]
     Active Substance: LISINOPRIL
     Indication: Blood pressure measurement
     Dosage: UNK
     Route: 048
  5. TAMSULOSIN [Concomitant]
     Active Substance: TAMSULOSIN
     Indication: Prostate infection
     Dosage: UNK
     Route: 048

REACTIONS (2)
  - Product taste abnormal [Unknown]
  - Product odour abnormal [Unknown]

NARRATIVE: CASE EVENT DATE: 20240126
